FAERS Safety Report 8985492 (Version 2)
Quarter: 2013Q1

REPORT INFORMATION
  Report Type: Spontaneous
  Country: US (occurrence: US)
  Receive Date: 20121226
  Receipt Date: 20130207
  Transmission Date: 20140127
  Serious: Yes (Other)
  Sender: FDA-Public Use
  Company Number: US-PFIZER INC-2012324428

PATIENT
  Age: 45 Year
  Sex: Male
  Weight: 72.56 kg

DRUGS (1)
  1. DILANTIN [Suspect]
     Indication: GRAND MAL CONVULSION
     Dosage: 100 MG, 3X/DAY
     Route: 048
     Dates: start: 200909

REACTIONS (6)
  - Brain injury [Unknown]
  - Nervous system disorder [Unknown]
  - Nerve injury [Unknown]
  - Chest pain [Unknown]
  - Pain [Unknown]
  - Headache [Unknown]
